FAERS Safety Report 6731816-4 (Version None)
Quarter: 2010Q2

REPORT INFORMATION
  Report Type: 
  Country: None (occurrence: None)
  Receive Date: 20100519
  Receipt Date: 20100506
  Transmission Date: 20101027
  Serious: Yes (Other)
  Sender: FDA-Public Use
  Company Number: CA-JNJFOC-20100502871

PATIENT
  Age: 9 Year
  Sex: Female

DRUGS (6)
  1. CHILDREN'S MOTRIN [Suspect]
     Indication: PAIN IN EXTREMITY
     Dosage: ALTERNATING WITH ACETAMINOPHEN
     Route: 048
  2. CHILDREN'S MOTRIN [Suspect]
     Indication: PYREXIA
     Dosage: ALTERNATING WITH ACETAMINOPHEN
     Route: 048
  3. CHILDREN'S MOTRIN [Suspect]
     Indication: OROPHARYNGEAL PAIN
     Dosage: ALTERNATING WITH ACETAMINOPHEN
     Route: 048
  4. CHILDREN'S TYLENOL LIQUID BUBBLEGUM [Suspect]
     Indication: PAIN IN EXTREMITY
  5. CHILDREN'S TYLENOL LIQUID BUBBLEGUM [Suspect]
     Indication: PYREXIA
  6. CHILDREN'S TYLENOL LIQUID BUBBLEGUM [Suspect]
     Indication: OROPHARYNGEAL PAIN

REACTIONS (5)
  - ABDOMINAL PAIN UPPER [None]
  - HEPATOMEGALY [None]
  - PHARYNGITIS [None]
  - PRODUCT QUALITY ISSUE [None]
  - PYREXIA [None]
